FAERS Safety Report 6762581-2 (Version None)
Quarter: 2010Q2

REPORT INFORMATION
  Report Type: 
  Country: None (occurrence: None)
  Receive Date: 20100609
  Receipt Date: 20100528
  Transmission Date: 20101027
  Serious: Yes (Other)
  Sender: FDA-Public Use
  Company Number: KR-PFIZER INC-2010067099

PATIENT
  Age: 16 Month
  Sex: Female
  Weight: 10 kg

DRUGS (1)
  1. XANAX [Suspect]
     Dosage: A QUARTER OF 0.5 MG
     Route: 048
     Dates: start: 20100528

REACTIONS (1)
  - ACCIDENTAL DRUG INTAKE BY CHILD [None]
